FAERS Safety Report 20545933 (Version 1)
Quarter: 2022Q1

REPORT INFORMATION
  Report Type: Spontaneous
  Country: CN (occurrence: CN)
  Receive Date: 20220303
  Receipt Date: 20220303
  Transmission Date: 20220423
  Serious: Yes (Other)
  Sender: FDA-Public Use
  Company Number: CN-BAXTER-2022BAX004592

PATIENT
  Age: 59 Year
  Sex: Male
  Weight: 67 kg

DRUGS (8)
  1. IFOSFAMIDE [Suspect]
     Active Substance: IFOSFAMIDE
     Indication: Soft tissue sarcoma
     Dosage: IFOSFAMIDE FOR INJECTION 4G + 0.9% SODIUM CHLORIDE INJECTION 500ML IVGTT, QD
     Route: 041
     Dates: start: 20211231, end: 20220103
  2. IFOSFAMIDE [Suspect]
     Active Substance: IFOSFAMIDE
     Dosage: IFOSFAMIDE FOR INJECTION+ SODIUM CHLORIDE INJECTION (DOSE REINTRODUCED)
     Route: 041
  3. SODIUM CHLORIDE [Suspect]
     Active Substance: SODIUM CHLORIDE
     Indication: Medication dilution
     Dosage: IFOSFAMIDE FOR INJECTION 4G + 0.9% SODIUM CHLORIDE INJECTION 500ML IVGTT, QD
     Route: 041
     Dates: start: 20211231, end: 20220103
  4. SODIUM CHLORIDE [Suspect]
     Active Substance: SODIUM CHLORIDE
     Dosage: IFOSFAMIDE FOR INJECTION +SODIUM CHLORIDE INJECTION, (DOSE REINTRODUCED)
     Route: 041
  5. DEXTROSE [Suspect]
     Active Substance: DEXTROSE
     Indication: Medication dilution
     Dosage: ROUTE: IV PUMP. (DOXORUBICIN LIPOSOME INJECTION 60MG IV + 5% GLUCOSE INJECTION 100ML IV PUMP, 24H, O
     Route: 050
     Dates: start: 20211231, end: 20220101
  6. DEXTROSE [Suspect]
     Active Substance: DEXTROSE
     Dosage: ROUTE: IV PUMP. (DOXORUBICIN LIPOSOME INJECTION + 5% GLUCOSE INJECTION ) (DOSE REINTRODUCED)
     Route: 042
  7. DOXORUBICIN HYDROCHLORIDE [Suspect]
     Active Substance: DOXORUBICIN HYDROCHLORIDE
     Indication: Soft tissue sarcoma
     Dosage: ROUTE: INTRA-PUMP INJECTION (DOXORUBICIN LIPOSOME INJECTION 60MG IV + 5% GLUCOSE INJECTION 100ML IV
     Route: 050
     Dates: start: 20211231, end: 20220101
  8. DOXORUBICIN HYDROCHLORIDE [Suspect]
     Active Substance: DOXORUBICIN HYDROCHLORIDE
     Dosage: ROUTE: INTRA-PUMP INJECTION (DOXORUBICIN LIPOSOME INJECTION + 5% GLUCOSE INJECTION) DOSE REINTRODUCE
     Route: 065

REACTIONS (1)
  - Myelosuppression [Recovering/Resolving]

NARRATIVE: CASE EVENT DATE: 20220110
